FAERS Safety Report 7877564-9 (Version None)
Quarter: 2011Q4

REPORT INFORMATION
  Report Type: 
  Country: None (occurrence: None)
  Receive Date: 20111031
  Receipt Date: 20111031
  Transmission Date: 20120403
  Serious: Yes (Hospitalization, Other)
  Sender: FDA-Public Use
  Company Number: BR-PFIZER INC-2010129807

PATIENT
  Age: 58 Year
  Sex: Female

DRUGS (5)
  1. LEVOTHYROXINE SODIUM [Concomitant]
     Indication: THYROID DISORDER
     Dosage: UNK
     Dates: start: 20040101
  2. CLINFAR [Concomitant]
     Dosage: UNK
     Dates: start: 20110201
  3. ALPRAZOLAM [Suspect]
     Dosage: 2 MG, 3X/DAY
     Dates: start: 20050101
  4. ALPRAZOLAM [Suspect]
     Indication: DEPRESSION
     Dosage: 1 MG, 3X/DAY
     Route: 048
     Dates: start: 20041202
  5. SIMVASTATIN [Concomitant]
     Indication: BLOOD CHOLESTEROL INCREASED
     Dosage: UNK
     Dates: start: 20040101

REACTIONS (3)
  - VITAMIN D DEFICIENCY [None]
  - ABDOMINAL PAIN [None]
  - GASTRIC VOLVULUS [None]
